FAERS Safety Report 9448981 (Version 1)
Quarter: 2013Q3

REPORT INFORMATION
  Report Type: Spontaneous
  Country: CA (occurrence: CA)
  Receive Date: 20130808
  Receipt Date: 20130808
  Transmission Date: 20140515
  Serious: Yes (Other)
  Sender: FDA-Public Use
  Company Number: CA-009507513-1308CAN003218

PATIENT
  Age: 9 Year
  Sex: Male

DRUGS (1)
  1. COPPERTONE [Suspect]
     Indication: PROPHYLAXIS

REACTIONS (6)
  - Plastic surgery [Recovering/Resolving]
  - Disability [Recovering/Resolving]
  - Skin necrosis [Unknown]
  - Burns second degree [Recovering/Resolving]
  - Pain [Recovered/Resolved]
  - Blister [Recovering/Resolving]
